FAERS Safety Report 5670653-9 (Version None)
Quarter: 2008Q1

REPORT INFORMATION
  Report Type: 
  Country: None (occurrence: None)
  Receive Date: 20080314
  Receipt Date: 20080314
  Transmission Date: 20080703
  Serious: Yes (Hospitalization)
  Sender: FDA-Public Use
  Company Number: None

PATIENT
  Age: 55 Year
  Sex: Male

DRUGS (3)
  1. PHENYTOIN [Suspect]
  2. VANCOMYCIN [Suspect]
  3. MEROPENEM [Suspect]

REACTIONS (3)
  - ERYTHEMA MULTIFORME [None]
  - RED MAN SYNDROME [None]
  - TOXIC EPIDERMAL NECROLYSIS [None]
